FAERS Safety Report 8359829-X (Version None)
Quarter: 2012Q2

REPORT INFORMATION
  Report Type: 
  Country: None (occurrence: None)
  Receive Date: 20120515
  Receipt Date: 20120504
  Transmission Date: 20120825
  Serious: Yes (Other)
  Sender: FDA-Public Use
  Company Number: US-JNJFOC-20120507147

PATIENT
  Sex: Female
  Weight: 68.04 kg

DRUGS (3)
  1. FENTANYL-100 [Suspect]
     Indication: SPINAL DISORDER
     Route: 062
     Dates: start: 20110101, end: 20120101
  2. FENTANYL-100 [Suspect]
     Route: 062
     Dates: end: 20110101
  3. DURAGESIC-100 [Suspect]
     Indication: SPINAL DISORDER
     Route: 062
     Dates: start: 20120101

REACTIONS (4)
  - SPINAL DISORDER [None]
  - DRUG INEFFECTIVE [None]
  - PRODUCT QUALITY ISSUE [None]
  - WRONG TECHNIQUE IN DRUG USAGE PROCESS [None]
